FAERS Safety Report 14981465 (Version 1)
Quarter: 2018Q2

REPORT INFORMATION
  Report Type: Spontaneous
  Country: TR (occurrence: TR)
  Receive Date: 20180606
  Receipt Date: 20180606
  Transmission Date: 20180711
  Serious: Yes (Hospitalization)
  Sender: FDA-Public Use
  Company Number: TR-ESPERO PHARMACEUTICALS-ESP201805-000029

PATIENT
  Age: 68 Year
  Sex: Female
  Weight: 72 kg

DRUGS (6)
  1. NITROLINGUAL PUMPSPRAY [Suspect]
     Active Substance: NITROGLYCERIN
     Dosage: 2 SPRAYS
     Route: 060
  2. ECOPIRIN [Concomitant]
     Active Substance: ASPIRIN
  3. LEVETRON [Concomitant]
  4. LAROXYL [Concomitant]
     Active Substance: AMITRIPTYLINE HYDROCHLORIDE
  5. DELIX [Concomitant]
     Active Substance: RAMIPRIL
  6. BELOC [Concomitant]
     Active Substance: METOPROLOL TARTRATE

REACTIONS (3)
  - Tachypnoea [Unknown]
  - Malaise [Unknown]
  - Rash [Unknown]
